FAERS Safety Report 7432757-X (Version None)
Quarter: 2011Q2

REPORT INFORMATION
  Report Type: 
  Country: None (occurrence: None)
  Receive Date: 20110422
  Receipt Date: 20110419
  Transmission Date: 20111010
  Serious: Yes (Death)
  Sender: FDA-Public Use
  Company Number: A0924019A

PATIENT
  Age: 49 Year
  Sex: Male

DRUGS (2)
  1. ADVAIR HFA [Suspect]
     Route: 055
  2. SEREVENT [Suspect]
     Route: 055

REACTIONS (1)
  - CARDIO-RESPIRATORY ARREST [None]
